FAERS Safety Report 8176931 (Version 3)
Quarter: 2013Q3

REPORT INFORMATION
  Report Type: Report from Study
  Country: US (occurrence: US)
  Receive Date: 20111012
  Receipt Date: 20130828
  Transmission Date: 20140515
  Serious: Yes (Hospitalization)
  Sender: FDA-Public Use
  Company Number: US-ASTRAZENECA-2011SE59948

PATIENT
  Age: 28149 Day
  Sex: Female

DRUGS (21)
  1. AZD6140 [Suspect]
     Indication: CORONARY ARTERY DISEASE
     Route: 048
     Dates: start: 20110718, end: 20110806
  2. AZD6140 [Suspect]
     Indication: CORONARY ARTERY DISEASE
     Route: 048
     Dates: start: 20110808, end: 20110930
  3. AZD6140 [Suspect]
     Indication: CORONARY ARTERY DISEASE
     Route: 048
     Dates: start: 20111004, end: 20111010
  4. METOPROLOL [Concomitant]
     Indication: HYPERTENSION
     Route: 048
  5. FAMOTIDINE [Concomitant]
     Indication: GASTROOESOPHAGEAL REFLUX DISEASE
     Route: 048
     Dates: end: 20111101
  6. LISINOPRIL [Concomitant]
     Indication: HYPERTENSION
     Route: 048
     Dates: start: 20110806, end: 20110808
  7. LISINOPRIL [Concomitant]
     Indication: ACCELERATED HYPERTENSION
     Route: 048
     Dates: start: 20110806, end: 20110808
  8. LISINOPRIL [Concomitant]
     Indication: HYPERTENSION
     Route: 048
     Dates: start: 20110808
  9. LISINOPRIL [Concomitant]
     Indication: ACCELERATED HYPERTENSION
     Route: 048
     Dates: start: 20110808
  10. KETOROLAC [Concomitant]
     Indication: CATARACT OPERATION
     Route: 047
  11. METFORMIN [Concomitant]
     Indication: TYPE 2 DIABETES MELLITUS
     Route: 048
  12. SERTRALINE [Concomitant]
     Indication: ANXIETY
     Route: 048
  13. SERTRALINE [Concomitant]
     Indication: DEPRESSION
     Route: 048
  14. SIMVASTATIN [Concomitant]
     Indication: HYPERLIPIDAEMIA
     Route: 048
  15. ASA [Concomitant]
     Route: 048
     Dates: end: 20120125
  16. ASA [Concomitant]
     Route: 048
     Dates: start: 20120208, end: 20120319
  17. ASA [Concomitant]
     Route: 048
     Dates: start: 20120320
  18. NITROGLYCERIN [Concomitant]
     Indication: ANGINA PECTORIS
     Route: 060
     Dates: start: 20110706
  19. MULTIVITAMIN [Concomitant]
     Indication: ROUTINE HEALTH MAINTENANCE
     Route: 048
  20. TYLENOL [Concomitant]
     Indication: PAIN
     Dosage: 650 MG FOUR TIMES A DAY AS NEEDED
     Route: 048
     Dates: start: 20110201
  21. CHOLECALCIFEROL [Concomitant]
     Indication: VITAMIN SUPPLEMENTATION
     Route: 048

REACTIONS (1)
  - Non-cardiac chest pain [Recovered/Resolved]
